FAERS Safety Report 8134465-9 (Version None)
Quarter: 2012Q1

REPORT INFORMATION
  Report Type: 
  Country: None (occurrence: None)
  Receive Date: 20120214
  Receipt Date: 20120214
  Transmission Date: 20120608
  Serious: No
  Sender: FDA-Public Use
  Company Number: None

PATIENT
  Age: 62 Year
  Sex: Female
  Weight: 76.203 kg

DRUGS (1)
  1. BUPROPION HCL [Suspect]
     Indication: DEPRESSION
     Dosage: 75 MG
     Dates: start: 20100918, end: 20101019

REACTIONS (3)
  - FOREARM FRACTURE [None]
  - CONVULSION [None]
  - FALL [None]
